FAERS Safety Report 4815154-2 (Version None)
Quarter: 2005Q4

REPORT INFORMATION
  Report Type: 
  Country: None (occurrence: None)
  Receive Date: 20051026
  Receipt Date: 20051010
  Transmission Date: 20060501
  Serious: Yes (Hospitalization)
  Sender: FDA-Public Use
  Company Number: 2005001980

PATIENT
  Age: 46 Year
  Sex: Male

DRUGS (2)
  1. ERLOTINIB HCL (TABLET) (ERLOTINIB HCL) [Suspect]
     Indication: BRONCHIAL NEOPLASM
     Dosage: 150 MG (QD), ORAL
     Route: 048
     Dates: start: 20050903, end: 20050914
  2. ERLOTINIB HCL (TABLET) (ERLOTINIB HCL) [Suspect]
     Indication: LUNG NEOPLASM
     Dosage: 150 MG (QD), ORAL
     Route: 048
     Dates: start: 20050903, end: 20050914

REACTIONS (8)
  - CHEST X-RAY ABNORMAL [None]
  - CONDITION AGGRAVATED [None]
  - LUNG INFILTRATION [None]
  - MEDIASTINAL DISORDER [None]
  - PLEURAL EFFUSION [None]
  - PLEURITIC PAIN [None]
  - PYREXIA [None]
  - RASH [None]
